FAERS Safety Report 22287000 (Version 3)
Quarter: 2023Q2

REPORT INFORMATION
  Report Type: Report from Study
  Country: BG (occurrence: BG)
  Receive Date: 20230505
  Receipt Date: 20230530
  Transmission Date: 20230721
  Serious: Yes (Hospitalization)
  Sender: FDA-Public Use
  Company Number: BG-002147023-NVSC2023BG023411

PATIENT
  Age: 59 Year
  Sex: Female
  Weight: 60 kg

DRUGS (11)
  1. INCLISIRAN [Suspect]
     Active Substance: INCLISIRAN
     Indication: Hypercholesterolaemia
     Dosage: CODE NOT BROKEN
     Route: 058
     Dates: start: 20221129
  2. INVESTIGATIONAL PRODUCT [Suspect]
     Active Substance: INVESTIGATIONAL PRODUCT
     Indication: Hypercholesterolaemia
     Dosage: CODE NOT BROKEN
     Route: 058
     Dates: start: 20221129
  3. PLACEBO [Suspect]
     Active Substance: UNSPECIFIED INGREDIENT
     Indication: Hypercholesterolaemia
     Dosage: CODE NOT BROKEN
     Route: 058
     Dates: start: 20221129
  4. METOPROLOL SUCCINATE [Concomitant]
     Active Substance: METOPROLOL SUCCINATE
     Indication: Angina pectoris
     Dosage: UNK
     Route: 065
     Dates: start: 20221124
  5. METOPROLOL SUCCINATE [Concomitant]
     Active Substance: METOPROLOL SUCCINATE
     Indication: Supraventricular extrasystoles
  6. RAMIPRIL [Concomitant]
     Active Substance: RAMIPRIL
     Indication: Hypertension
     Dosage: UNK
     Route: 065
     Dates: start: 20220903
  7. AMLODIPINE BESYLATE [Concomitant]
     Active Substance: AMLODIPINE BESYLATE
     Indication: Hypertension
     Dosage: UNK
     Route: 065
     Dates: start: 20220903
  8. MOLSIDOMINE [Concomitant]
     Active Substance: MOLSIDOMINE
     Indication: Angina pectoris
     Dosage: UNK
     Route: 065
     Dates: start: 20220903
  9. TRIMETAZIDINE DIHYDROCHLORIDE [Concomitant]
     Active Substance: TRIMETAZIDINE DIHYDROCHLORIDE
     Indication: Angina pectoris
     Dosage: UNK
     Route: 065
     Dates: start: 20220903
  10. ASPIRIN [Concomitant]
     Active Substance: ASPIRIN
     Indication: Angina pectoris
     Dosage: UNK
     Route: 065
     Dates: start: 20220903
  11. EZETIMIBE [Concomitant]
     Active Substance: EZETIMIBE
     Indication: Hypercholesterolaemia
     Dosage: UNK
     Route: 065
     Dates: start: 202211

REACTIONS (2)
  - Hepatic steatosis [Recovering/Resolving]
  - Angina unstable [Recovered/Resolved]

NARRATIVE: CASE EVENT DATE: 20230110
